FAERS Safety Report 23691529 (Version 1)
Quarter: 2024Q2

REPORT INFORMATION
  Report Type: Spontaneous
  Country: CN (occurrence: CN)
  Receive Date: 20240401
  Receipt Date: 20240401
  Transmission Date: 20240716
  Serious: Yes (Hospitalization, Other)
  Sender: FDA-Public Use
  Company Number: CN-MLMSERVICE-20240318-4878123-1

PATIENT
  Age: 64 Year
  Sex: Male

DRUGS (13)
  1. FLUOROURACIL [Suspect]
     Active Substance: FLUOROURACIL
     Indication: Colorectal cancer
     Dosage: 6 CYCLICAL
     Dates: start: 2006
  2. OXALIPLATIN [Suspect]
     Active Substance: OXALIPLATIN
     Indication: Gastric cancer
     Dosage: 8 CYCLICAL
  3. PACLITAXEL [Suspect]
     Active Substance: PACLITAXEL
     Indication: Gastric cancer
     Dosage: 4 CYCLICAL
  4. TORIPALIMAB [Suspect]
     Active Substance: TORIPALIMAB
     Indication: Gastric cancer
     Dosage: 5 CYCLICAL
  5. LEUCOVORIN [Suspect]
     Active Substance: LEUCOVORIN\LEUCOVORIN CALCIUM
     Indication: Colorectal cancer
     Dosage: 8 CYCLICAL
  6. PACLITAXEL [Suspect]
     Active Substance: PACLITAXEL
     Indication: Metastases to liver
     Dosage: 4 CYCLICAL
  7. FLUOROURACIL [Suspect]
     Active Substance: FLUOROURACIL
     Indication: Gastric cancer
     Dosage: 8 CYCLICAL
  8. FLUOROURACIL [Suspect]
     Active Substance: FLUOROURACIL
     Indication: Colorectal cancer
     Dosage: 8 CYCLICAL
  9. TORIPALIMAB [Suspect]
     Active Substance: TORIPALIMAB
     Indication: Metastases to liver
     Dosage: 5 CYCLICAL
  10. LEUCOVORIN [Suspect]
     Active Substance: LEUCOVORIN\LEUCOVORIN CALCIUM
     Indication: Colorectal cancer
     Dosage: 6 CYCLICAL
     Dates: start: 2006
  11. OXALIPLATIN [Suspect]
     Active Substance: OXALIPLATIN
     Indication: Colorectal cancer
     Dosage: 6 CYCLICAL
     Dates: start: 2006
  12. LEUCOVORIN [Suspect]
     Active Substance: LEUCOVORIN\LEUCOVORIN CALCIUM
     Indication: Gastric cancer
     Dosage: 8 CYCLICAL
  13. OXALIPLATIN [Suspect]
     Active Substance: OXALIPLATIN
     Indication: Colorectal cancer
     Dosage: 8 CYCLICAL

REACTIONS (1)
  - Guillain-Barre syndrome [Recovering/Resolving]
